FAERS Safety Report 8986531 (Version 4)
Quarter: 2013Q4

REPORT INFORMATION
  Report Type: Spontaneous
  Country: US (occurrence: US)
  Receive Date: 20121227
  Receipt Date: 20131001
  Transmission Date: 20140711
  Serious: Yes (Hospitalization, Disabling, Other)
  Sender: FDA-Public Use
  Company Number: US-ASTRAZENECA-2012SE94692

PATIENT
  Age: 55 Year
  Sex: Female

DRUGS (19)
  1. NEXIUM [Suspect]
     Indication: GASTROOESOPHAGEAL REFLUX DISEASE
     Route: 048
     Dates: start: 1996, end: 201305
  2. NEXIUM [Suspect]
     Indication: GASTROOESOPHAGEAL REFLUX DISEASE
     Route: 048
     Dates: start: 20070105
  3. METOLAZONE [Concomitant]
     Dates: start: 20061212
  4. TOPROL XL [Concomitant]
     Dates: start: 20061219
  5. POTASSIUM CL ER [Concomitant]
     Dates: start: 20061219
  6. TRAMADOL ACETOAMINO [Concomitant]
     Dates: start: 20070105
  7. CRESTOR [Concomitant]
     Indication: BLOOD CHOLESTEROL ABNORMAL
     Dates: start: 20070105
  8. CRESTOR [Concomitant]
     Indication: BLOOD CHOLESTEROL ABNORMAL
  9. NORVASC [Concomitant]
     Dates: start: 20070105
  10. PLAVIX [Concomitant]
     Dates: start: 20070105
  11. LISINOPRIL [Concomitant]
     Dates: start: 20070111
  12. DIOVAN [Concomitant]
     Dates: start: 20070105
  13. PREVACID [Concomitant]
     Dates: start: 1998, end: 1999
  14. ZANTAC [Concomitant]
     Dates: start: 20130517
  15. CLONIDINE [Concomitant]
     Indication: BLOOD PRESSURE ABNORMAL
  16. ZEMPLAR [Concomitant]
  17. LORTAB [Concomitant]
     Indication: PAIN
  18. NEPHRO VITE [Concomitant]
  19. SINGULAIR [Concomitant]

REACTIONS (16)
  - Bullous impetigo [Unknown]
  - Upper limb fracture [Unknown]
  - Limb injury [Unknown]
  - Renal failure chronic [Unknown]
  - Road traffic accident [Unknown]
  - Diabetes mellitus [Unknown]
  - Limb crushing injury [Unknown]
  - Osteoporosis [Unknown]
  - Bone disorder [Unknown]
  - Cataract [Unknown]
  - Cardiovascular disorder [Unknown]
  - Arthritis [Unknown]
  - Glaucoma [Unknown]
  - Peripheral arterial occlusive disease [Unknown]
  - Humerus fracture [Unknown]
  - Depression [Unknown]
